FAERS Safety Report 4319383-6 (Version None)
Quarter: 2004Q1

REPORT INFORMATION
  Report Type: 
  Country: None (occurrence: None)
  Receive Date: 20040318
  Receipt Date: 20040318
  Transmission Date: 20041129
  Serious: Yes (Life-Threatening, Hospitalization)
  Sender: FDA-Public Use
  Company Number: None

PATIENT
  Sex: Male

DRUGS (13)
  1. THEOPHYLLINE-SR [Suspect]
     Indication: CHRONIC OBSTRUCTIVE AIRWAYS DISEASE
     Dosage: 300 MG BID ORAL
     Route: 048
     Dates: start: 20021010, end: 20040110
  2. PANTOPRAZOLE [Concomitant]
  3. OXYCONTIN [Concomitant]
  4. ACETAMINOPHEN W/ CODEINE [Concomitant]
  5. SPIRONOLACTONE [Concomitant]
  6. LORATADINE [Concomitant]
  7. LEVOTHYROXINE SODIUM [Concomitant]
  8. PAROXETINE HCL [Concomitant]
  9. POTASSIUM CHLORIDE [Concomitant]
  10. ALLOPURINOL [Concomitant]
  11. FUROSEMIDE [Concomitant]
  12. DOCUSATE CALCIUM [Concomitant]
  13. IPRATROPIUM AND ALBUTEROL [Concomitant]

REACTIONS (2)
  - ATRIAL FIBRILLATION [None]
  - DRUG LEVEL INCREASED [None]
